FAERS Safety Report 14692361 (Version 1)
Quarter: 2018Q1

REPORT INFORMATION
  Report Type: Spontaneous
  Country: PL (occurrence: PL)
  Receive Date: 20180329
  Receipt Date: 20180329
  Transmission Date: 20180509
  Serious: Yes (Other)
  Sender: FDA-Public Use
  Company Number: PL-ABBVIE-18S-129-2305656-00

PATIENT
  Age: 36 Year
  Sex: Male

DRUGS (1)
  1. LIPANTHYL [Suspect]
     Active Substance: FENOFIBRATE
     Indication: BLOOD TRIGLYCERIDES INCREASED
     Dosage: 200 MG, QD
     Route: 065
     Dates: start: 201710

REACTIONS (2)
  - Myalgia [Unknown]
  - Diarrhoea [Unknown]
